FAERS Safety Report 20379206 (Version 2)
Quarter: 2022Q1

REPORT INFORMATION
  Report Type: Report from Study
  Country: CN (occurrence: CN)
  Receive Date: 20220126
  Receipt Date: 20220129
  Transmission Date: 20220423
  Serious: Yes (Death, Other)
  Sender: FDA-Public Use
  Company Number: CN-NOVARTISPH-NVSC2022CN013355

PATIENT
  Sex: Male

DRUGS (1)
  1. ZYKADIA [Suspect]
     Active Substance: CERITINIB
     Indication: Non-small cell lung cancer
     Dosage: 450 UNK (MG/D)
     Route: 048
     Dates: start: 20200121

REACTIONS (6)
  - Cardiac failure [Fatal]
  - Epilepsy [Unknown]
  - Depressed level of consciousness [Unknown]
  - Disorganised speech [Unknown]
  - Abnormal behaviour [Unknown]
  - Mental disorder [Unknown]
